FAERS Safety Report 11429121 (Version 2)
Quarter: 2016Q2

REPORT INFORMATION
  Report Type: Spontaneous
  Country: US (occurrence: US)
  Receive Date: 20150828
  Receipt Date: 20160406
  Transmission Date: 20160815
  Serious: Yes (Other)
  Sender: FDA-Public Use
  Company Number: US-CIPLA LTD.-2015US06758

PATIENT

DRUGS (15)
  1. CARBOPLATIN. [Suspect]
     Active Substance: CARBOPLATIN
     Dosage: 0.2, 1.7, AND 17.2 MG
     Route: 065
  2. PACLITAXEL. [Suspect]
     Active Substance: PACLITAXEL
     Indication: OVARIAN CANCER
     Dosage: ON A WEEKLY BASIS
     Route: 065
     Dates: start: 201212, end: 201306
  3. DOXORUBICIN [Suspect]
     Active Substance: DOXORUBICIN
     Indication: OVARIAN CANCER
     Route: 065
  4. BEVACIZUMAB [Suspect]
     Active Substance: BEVACIZUMAB
     Indication: OVARIAN CANCER
     Route: 065
  5. PACLITAXEL. [Suspect]
     Active Substance: PACLITAXEL
     Indication: DISEASE RECURRENCE
     Dosage: 80 MG/M2, STARTING AT 8 PM
     Route: 065
  6. TAMOXIFEN [Suspect]
     Active Substance: TAMOXIFEN
     Indication: OVARIAN CANCER
     Route: 065
  7. BEVACIZUMAB [Suspect]
     Active Substance: BEVACIZUMAB
     Indication: DISEASE RECURRENCE
  8. CARBOPLATIN. [Suspect]
     Active Substance: CARBOPLATIN
     Indication: OVARIAN CANCER
     Dosage: AS A SINGLE AGENT
     Route: 065
  9. DECADRON [Concomitant]
     Active Substance: DEXAMETHASONE
     Indication: PREMEDICATION
     Dosage: 20 MG, UNK
     Route: 065
  10. CARBOPLATIN. [Suspect]
     Active Substance: CARBOPLATIN
     Indication: DISEASE RECURRENCE
     Dosage: ON A WEEKLY BASIS
     Route: 065
     Dates: start: 201212, end: 201306
  11. DOXORUBICIN [Suspect]
     Active Substance: DOXORUBICIN
     Indication: DISEASE RECURRENCE
  12. OLAPARIB [Suspect]
     Active Substance: OLAPARIB
     Indication: OVARIAN CANCER
     Dosage: UNK
     Route: 065
     Dates: start: 201212, end: 201302
  13. OLAPARIB [Suspect]
     Active Substance: OLAPARIB
     Indication: DISEASE RECURRENCE
  14. TAMOXIFEN [Suspect]
     Active Substance: TAMOXIFEN
     Indication: DISEASE RECURRENCE
  15. DIPHENHYDRAMINE. [Concomitant]
     Active Substance: DIPHENHYDRAMINE
     Indication: PREMEDICATION
     Dosage: 50 MG, UNK
     Route: 065

REACTIONS (6)
  - Drug specific antibody present [Unknown]
  - Hypotension [Unknown]
  - Haemolytic anaemia [Unknown]
  - Disease recurrence [Unknown]
  - Pallor [Unknown]
  - Haematuria [Unknown]
